FAERS Safety Report 5240600-2 (Version None)
Quarter: 2007Q1

REPORT INFORMATION
  Report Type: 
  Country: None (occurrence: None)
  Receive Date: 20061208
  Receipt Date: 20050323
  Transmission Date: 20070707
  Serious: Yes (Other)
  Sender: FDA-Public Use
  Company Number: 2005UW04693

PATIENT
  Age: 54 Year
  Sex: Female

DRUGS (4)
  1. CRESTOR [Suspect]
     Dosage: 10 MG QD PO
     Route: 048
     Dates: start: 20031204, end: 20050222
  2. CENESTINE [Concomitant]
  3. SYNTHROID [Concomitant]
  4. PROZAC [Concomitant]

REACTIONS (1)
  - LOW DENSITY LIPOPROTEIN ABNORMAL [None]
